FAERS Safety Report 4416787-8 (Version None)
Quarter: 2004Q2

REPORT INFORMATION
  Report Type: 
  Country: None (occurrence: None)
  Receive Date: 20040628
  Receipt Date: 20040316
  Transmission Date: 20050107
  Serious: No
  Sender: FDA-Public Use
  Company Number: USA-2004-0012728

PATIENT
  Age: 80 Year
  Sex: Female
  Weight: 63.9 kg

DRUGS (7)
  1. SPECTRACEF [Suspect]
     Indication: BRONCHITIS ACUTE
     Dosage: 400 MG, BID, ORAL
     Route: 048
     Dates: start: 20031230, end: 20030108
  2. COZAAR [Concomitant]
  3. PLAQUENIL [Concomitant]
  4. SYNTHROID [Concomitant]
  5. PROTONIX [Concomitant]
  6. LEXAPRO [Concomitant]
  7. HYDROCHLOROTHIAZIDE [Concomitant]

REACTIONS (2)
  - DIARRHOEA [None]
  - HYPERSENSITIVITY [None]
